FAERS Safety Report 14794411 (Version 2)
Quarter: 2018Q2

REPORT INFORMATION
  Report Type: Spontaneous
  Country: RO (occurrence: RO)
  Receive Date: 20180423
  Receipt Date: 20180516
  Transmission Date: 20180711
  Serious: Yes (Death, Hospitalization, Other)
  Sender: FDA-Public Use
  Company Number: RO-GILEAD-2018-0333661

PATIENT
  Age: 60 Year
  Sex: Female

DRUGS (7)
  1. RIBAVIRINA [Concomitant]
     Active Substance: RIBAVIRIN
     Dosage: UNK
     Route: 048
     Dates: start: 20171101, end: 20180124
  2. NEXIUM [Concomitant]
     Active Substance: ESOMEPRAZOLE MAGNESIUM
     Indication: OESOPHAGITIS
     Dosage: UNK
  3. HARVONI [Suspect]
     Active Substance: LEDIPASVIR\SOFOSBUVIR
     Indication: HEPATITIS C
     Dosage: 1 DF QD
     Route: 048
     Dates: start: 20171101, end: 20180124
  4. SILIMARINA [Concomitant]
     Dosage: UNK
  5. VEROSPIRON [Concomitant]
     Active Substance: SPIRONOLACTONE
  6. GASTROFAIT [Concomitant]
     Indication: PROPHYLAXIS AGAINST GASTROINTESTINAL ULCER
     Dosage: UNK
  7. FUROSEMID                          /00032601/ [Concomitant]
     Active Substance: FUROSEMIDE

REACTIONS (6)
  - Hepatorenal syndrome [Recovered/Resolved]
  - Disease progression [Fatal]
  - Acute hepatic failure [Fatal]
  - Upper gastrointestinal haemorrhage [Unknown]
  - Hepatic encephalopathy [Recovered/Resolved]
  - Peritonitis bacterial [Recovered/Resolved]

NARRATIVE: CASE EVENT DATE: 201712
